FAERS Safety Report 7545703-5 (Version None)
Quarter: 2011Q2

REPORT INFORMATION
  Report Type: 
  Country: None (occurrence: None)
  Receive Date: 20110613
  Receipt Date: 20110613
  Transmission Date: 20111010
  Serious: Yes (Other)
  Sender: FDA-Public Use
  Company Number: None

PATIENT
  Age: 47 Year
  Sex: Male
  Weight: 76.2043 kg

DRUGS (1)
  1. SIMVASTATIN [Suspect]
     Indication: CHOLESTEROSIS
     Dosage: 80MG 1 X DAY PO
     Route: 048
     Dates: start: 20030219, end: 20110609

REACTIONS (3)
  - MUSCLE STRAIN [None]
  - INFLUENZA LIKE ILLNESS [None]
  - MYALGIA [None]
